FAERS Safety Report 14937997 (Version 1)
Quarter: 2018Q2

REPORT INFORMATION
  Report Type: Spontaneous
  Country: US (occurrence: US)
  Receive Date: 20180507
  Receipt Date: 20180507
  Transmission Date: 20180711
  Serious: Yes (Hospitalization)
  Sender: FDA-Public Use
  Company Number: None

PATIENT
  Age: 56 Year
  Sex: Female

DRUGS (5)
  1. PREDNISONE. [Concomitant]
     Active Substance: PREDNISONE
  2. COSENTYX [Suspect]
     Active Substance: SECUKINUMAB
     Indication: PSORIATIC ARTHROPATHY
     Route: 058
     Dates: start: 20161012
  3. FA [Concomitant]
  4. VIMVO [Concomitant]
  5. MTX [Concomitant]
     Active Substance: METHOTREXATE SODIUM

REACTIONS (2)
  - Hospitalisation [None]
  - Pain [None]

NARRATIVE: CASE EVENT DATE: 20180302
